FAERS Safety Report 6838256-8 (Version None)
Quarter: 2010Q3

REPORT INFORMATION
  Report Type: 
  Country: None (occurrence: None)
  Receive Date: 20100713
  Receipt Date: 20070605
  Transmission Date: 20110219
  Serious: Yes (Other)
  Sender: FDA-Public Use
  Company Number: US-PFIZER INC-2007047931

PATIENT
  Sex: Female

DRUGS (4)
  1. CHANTIX [Suspect]
     Indication: SMOKING CESSATION THERAPY
     Route: 048
     Dates: start: 20070529
  2. DOXEPIN HCL [Concomitant]
  3. LEVOTHYROXINE SODIUM [Concomitant]
  4. LYRICA [Concomitant]

REACTIONS (6)
  - DEPRESSION [None]
  - DYSGEUSIA [None]
  - LETHARGY [None]
  - NAUSEA [None]
  - SWELLING [None]
  - WEIGHT INCREASED [None]
